FAERS Safety Report 20138837 (Version 1)
Quarter: 2021Q4

REPORT INFORMATION
  Report Type: Spontaneous
  Country: BR (occurrence: BR)
  Receive Date: 20211202
  Receipt Date: 20211202
  Transmission Date: 20220303
  Serious: Yes (Other)
  Sender: FDA-Public Use
  Company Number: BR-LUPIN PHARMACEUTICALS INC.-2021-23523

PATIENT
  Age: 38 Year
  Sex: Female

DRUGS (1)
  1. MORPHINE [Suspect]
     Active Substance: MORPHINE
     Indication: Abdominal pain
     Dosage: UNK
     Route: 042

REACTIONS (6)
  - Haematemesis [Unknown]
  - Pancreatitis acute [Unknown]
  - Haemodynamic instability [Unknown]
  - Intussusception [Unknown]
  - Foetal death [None]
  - Maternal exposure during pregnancy [Unknown]
